FAERS Safety Report 12113562 (Version 1)
Quarter: 2016Q1

REPORT INFORMATION
  Report Type: Report from Study
  Country: US (occurrence: US)
  Receive Date: 20160225
  Receipt Date: 20160225
  Transmission Date: 20160526
  Serious: No
  Sender: FDA-Public Use
  Company Number: US-AMGEN-USASL2016020125

PATIENT
  Age: 68 Year
  Sex: Female

DRUGS (1)
  1. ENBREL [Suspect]
     Active Substance: ETANERCEPT
     Indication: PRODUCT USED FOR UNKNOWN INDICATION
     Dosage: UNK
     Route: 065

REACTIONS (7)
  - Injection site pain [Unknown]
  - Injection site erythema [Unknown]
  - Contusion [Unknown]
  - Injection site bruising [Unknown]
  - Injection site reaction [Unknown]
  - Drug dose omission [Unknown]
  - Tooth extraction [Unknown]

NARRATIVE: CASE EVENT DATE: 201602
